FAERS Safety Report 7733478-6 (Version None)
Quarter: 2011Q3

REPORT INFORMATION
  Report Type: 
  Country: None (occurrence: None)
  Receive Date: 20110907
  Receipt Date: 20110826
  Transmission Date: 20111222
  Serious: Yes (Hospitalization, Other)
  Sender: FDA-Public Use
  Company Number: BE-UCBSA-038630

PATIENT
  Sex: Male

DRUGS (6)
  1. ROPINIROLE [Concomitant]
     Indication: RESTLESS LEGS SYNDROME
  2. NEUPRO [Suspect]
     Indication: RESTLESS LEGS SYNDROME
     Dates: start: 20100901
  3. NEUPRO [Suspect]
     Dates: start: 20110601, end: 20110101
  4. NEUPRO [Suspect]
     Dosage: TITRATION TO 3 MG
     Dates: end: 20110601
  5. PRAMIPEXOLE DIHYDROCHLORIDE [Concomitant]
     Indication: RESTLESS LEGS SYNDROME
  6. ROPINIROLE [Concomitant]
     Dates: start: 20110101

REACTIONS (6)
  - BALANCE DISORDER [None]
  - MUSCULAR WEAKNESS [None]
  - DYSTONIA [None]
  - PARAESTHESIA [None]
  - HALLUCINATION [None]
  - GAIT DISTURBANCE [None]
